FAERS Safety Report 18218055 (Version 1)
Quarter: 2020Q3

REPORT INFORMATION
  Report Type: Spontaneous
  Country: FR (occurrence: FR)
  Receive Date: 20200901
  Receipt Date: 20200901
  Transmission Date: 20201103
  Serious: Yes (Disabling)
  Sender: FDA-Public Use
  Company Number: NVSC2020FR233954

PATIENT
  Age: 26 Year
  Sex: Female
  Weight: 64 kg

DRUGS (3)
  1. LAROXYL [Concomitant]
     Active Substance: AMITRIPTYLINE HYDROCHLORIDE
     Indication: DEPRESSION
     Dosage: 13 DRP, QD (SOLUTION BUVABLE) ((DROP (1/12 MILLILITRE)))
     Route: 048
     Dates: end: 20200705
  2. OFLOXACIN. [Suspect]
     Active Substance: OFLOXACIN
     Indication: PYELONEPHRITIS
     Dosage: 400 MG, QD
     Route: 048
     Dates: start: 20200104, end: 20200118
  3. LAMALINE [Concomitant]
     Indication: PAIN
     Dosage: 5 DF, 1?0?2?2 (G?LULE)
     Route: 048
     Dates: end: 20200519

REACTIONS (1)
  - Dysuria [Not Recovered/Not Resolved]

NARRATIVE: CASE EVENT DATE: 20200104
